FAERS Safety Report 5457111-1 (Version None)
Quarter: 2007Q3

REPORT INFORMATION
  Report Type: 
  Country: None (occurrence: None)
  Receive Date: 20070918
  Receipt Date: 20070110
  Transmission Date: 20080115
  Serious: No
  Sender: FDA-Public Use
  Company Number: US-ASTRAZENECA-2007UW00584

PATIENT
  Age: 44 Year
  Sex: Female

DRUGS (6)
  1. SEROQUEL [Suspect]
     Route: 048
  2. BENADRYL [Concomitant]
  3. WELLBUTRIN [Concomitant]
  4. LEXAPRO [Concomitant]
  5. KLONOPIN [Concomitant]
  6. TOPAMAX [Concomitant]

REACTIONS (5)
  - AKATHISIA [None]
  - MEDICATION ERROR [None]
  - MUSCLE TWITCHING [None]
  - RESTLESSNESS [None]
  - SOMNOLENCE [None]
